FAERS Safety Report 9344636 (Version 1)
Quarter: 2013Q2

REPORT INFORMATION
  Report Type: Report from Study
  Country: US (occurrence: US)
  Receive Date: 20130612
  Receipt Date: 20130612
  Transmission Date: 20140414
  Serious: Yes (Hospitalization, Other)
  Sender: FDA-Public Use
  Company Number: US-ABBOTT-13P-163-1044610-00

PATIENT
  Sex: Female

DRUGS (1)
  1. HUMIRA [Suspect]
     Indication: CROHN^S DISEASE

REACTIONS (7)
  - Adhesion [Unknown]
  - Abdominal pain [Unknown]
  - Oophorectomy [Unknown]
  - Psoriasis [Unknown]
  - Malaise [Unknown]
  - Vomiting [Recovered/Resolved]
  - Nausea [Recovered/Resolved]
